FAERS Safety Report 13118112 (Version 5)
Quarter: 2017Q1

REPORT INFORMATION
  Report Type: Spontaneous
  Country: US (occurrence: US)
  Receive Date: 20170116
  Receipt Date: 20170328
  Transmission Date: 20170428
  Serious: Yes (Hospitalization, Other)
  Sender: FDA-Public Use
  Company Number: US-JNJFOC-20161215494

PATIENT
  Age: 10 Year
  Sex: Male

DRUGS (8)
  1. RISPERDAL [Suspect]
     Active Substance: RISPERIDONE
     Indication: AUTISM
     Route: 048
     Dates: end: 2004
  2. RITALIN [Concomitant]
     Active Substance: METHYLPHENIDATE HYDROCHLORIDE
     Indication: PRODUCT USED FOR UNKNOWN INDICATION
     Route: 065
  3. RISPERDAL [Suspect]
     Active Substance: RISPERIDONE
     Indication: BIPOLAR DISORDER
     Dosage: IN VARIED DOSES OF 0.20 AND 0.5 MG
     Route: 048
     Dates: start: 200305, end: 200408
  4. ABILIFY [Suspect]
     Active Substance: ARIPIPRAZOLE
     Indication: PRODUCT USED FOR UNKNOWN INDICATION
     Route: 065
     Dates: end: 20031007
  5. RISPERDAL [Suspect]
     Active Substance: RISPERIDONE
     Indication: AUTISM
     Dosage: IN VARIED DOSES OF 0.20 AND 0.5 MG
     Route: 048
     Dates: start: 200305, end: 200408
  6. DIAZEPAM. [Suspect]
     Active Substance: DIAZEPAM
     Indication: MOOD SWINGS
     Route: 065
     Dates: end: 200504
  7. RISPERDAL [Suspect]
     Active Substance: RISPERIDONE
     Indication: BIPOLAR DISORDER
     Route: 048
     Dates: end: 2004
  8. CLONIDINE. [Concomitant]
     Active Substance: CLONIDINE
     Indication: PRODUCT USED FOR UNKNOWN INDICATION
     Route: 065

REACTIONS (6)
  - Emotional disorder [Unknown]
  - Galactorrhoea [Unknown]
  - Gynaecomastia [Unknown]
  - Seizure [Unknown]
  - Drug ineffective [Unknown]
  - Obesity [Unknown]

NARRATIVE: CASE EVENT DATE: 20031020
